FAERS Safety Report 5295777-X (Version None)
Quarter: 2007Q2

REPORT INFORMATION
  Report Type: 
  Country: None (occurrence: None)
  Receive Date: 20070413
  Receipt Date: 20070330
  Transmission Date: 20071010
  Serious: Yes (Other)
  Sender: FDA-Public Use
  Company Number: PHFR2007MT01207

PATIENT
  Age: 82 Year
  Sex: Female

DRUGS (3)
  1. LAMISIL [Suspect]
     Indication: ONYCHOMYCOSIS
     Dosage: 250 MG, QD
     Route: 048
     Dates: start: 20070101, end: 20070201
  2. MOBIC [Concomitant]
     Route: 048
  3. VALIUM [Concomitant]
     Route: 048

REACTIONS (3)
  - DEPRESSION [None]
  - FATIGUE [None]
  - LETHARGY [None]
